FAERS Safety Report 14074372 (Version 1)
Quarter: 2017Q4

REPORT INFORMATION
  Report Type: Spontaneous
  Country: NZ (occurrence: NZ)
  Receive Date: 20171010
  Receipt Date: 20171010
  Transmission Date: 20180321
  Serious: Yes (Hospitalization)
  Sender: FDA-Public Use
  Company Number: NZ-009507513-1710NZL004035

PATIENT
  Age: 59 Year
  Sex: Female

DRUGS (1)
  1. PEMBROLIZUMAB. [Suspect]
     Active Substance: PEMBROLIZUMAB
     Indication: MALIGNANT URINARY TRACT NEOPLASM
     Dosage: FREQUENCY: 3 DOSES OF PEMBROLIZUMAB.
     Route: 042
     Dates: start: 201510, end: 201603

REACTIONS (3)
  - Hyperglycaemia [Unknown]
  - Diabetes mellitus [Unknown]
  - Hypopituitarism [Unknown]

NARRATIVE: CASE EVENT DATE: 20160202
